FAERS Safety Report 22524525 (Version 1)
Quarter: 2023Q2

REPORT INFORMATION
  Report Type: Spontaneous
  Country: KR (occurrence: KR)
  Receive Date: 20230606
  Receipt Date: 20230606
  Transmission Date: 20230721
  Serious: Yes (Death, Hospitalization, Other)
  Sender: FDA-Public Use
  Company Number: KR-ORGANON-O2306KOR000107

PATIENT
  Age: 77 Year
  Sex: Female
  Weight: 63.6 kg

DRUGS (11)
  1. HYDROCHLOROTHIAZIDE\LOSARTAN POTASSIUM [Suspect]
     Active Substance: HYDROCHLOROTHIAZIDE\LOSARTAN POTASSIUM
     Dosage: UNK (FORMULATION: FILM COATED TABLET)
     Route: 048
     Dates: start: 2008
  2. ATORVASTATIN CALCIUM [Concomitant]
     Active Substance: ATORVASTATIN CALCIUM
     Dosage: UNK
     Dates: start: 2013
  3. GINKGO BILOBA LEAF EXTRACT [Concomitant]
     Active Substance: GINKGO BILOBA LEAF EXTRACT
     Dosage: UNK
     Dates: start: 2013
  4. METFORMIN HYDROCHLORIDE [Concomitant]
     Active Substance: METFORMIN HYDROCHLORIDE
     Dosage: UNK
     Dates: start: 2013
  5. PAMIDRONATE DISODIUM [Concomitant]
     Active Substance: PAMIDRONATE DISODIUM
     Dosage: UNK
     Dates: start: 2013
  6. ALBUMIN HUMAN [Concomitant]
     Active Substance: ALBUMIN HUMAN
     Dosage: UNK (FORMULATION: SOLUTION INJECTION) (ROUTE: VEIN)
     Route: 042
     Dates: start: 20180605
  7. TRAMADOL HYDROCHLORIDE [Concomitant]
     Active Substance: TRAMADOL HYDROCHLORIDE
     Dosage: UNK (FORMULATION: CAPSULES, UNCLASSIFIED)
     Dates: start: 20180620
  8. MEROPENEM [Concomitant]
     Active Substance: MEROPENEM
     Dosage: UNK (FORMULATION: INJECTABLES, UNCLASSIFIED)
     Dates: start: 20180701
  9. PREGABALIN [Concomitant]
     Active Substance: PREGABALIN
     Dosage: UNK (FORMULATION: CAPSULES UNCLASSIFIED)
     Dates: start: 20180704
  10. FLUBENDAZOLE [Concomitant]
     Active Substance: FLUBENDAZOLE
     Dosage: UNK
     Dates: start: 20180705
  11. ACETAMINOPHEN\TRAMADOL HYDROCHLORIDE [Concomitant]
     Active Substance: ACETAMINOPHEN\TRAMADOL HYDROCHLORIDE
     Dosage: UNK
     Route: 048
     Dates: start: 20180705

REACTIONS (1)
  - Pyelonephritis [Fatal]

NARRATIVE: CASE EVENT DATE: 20180810
